FAERS Safety Report 8473141-X (Version None)
Quarter: 2012Q2

REPORT INFORMATION
  Report Type: 
  Country: None (occurrence: None)
  Receive Date: 20120627
  Receipt Date: 20120620
  Transmission Date: 20120825
  Serious: Yes (Other)
  Sender: FDA-Public Use
  Company Number: SE-PFIZER INC-2012129719

PATIENT
  Age: 25 Year
  Sex: Male

DRUGS (4)
  1. ACETAMINOPHEN W/ CODEINE [Concomitant]
     Dosage: AS NEEDED
  2. MORPHINE [Concomitant]
     Indication: PAIN
     Dosage: UNK
  3. REFACTO [Suspect]
     Indication: FACTOR VIII DEFICIENCY
     Dosage: 3000 IU, ALTERNATE DAY
     Route: 042
     Dates: start: 20091201, end: 20120601
  4. NEXIUM [Concomitant]
     Dosage: 40 MG, UNK

REACTIONS (9)
  - INTESTINAL PERFORATION [None]
  - DRUG INEFFECTIVE [None]
  - COLITIS ULCERATIVE [None]
  - PAIN [None]
  - ARTHRALGIA [None]
  - INTESTINAL HAEMORRHAGE [None]
  - ABDOMINAL PAIN UPPER [None]
  - FATIGUE [None]
  - SOMNOLENCE [None]
